FAERS Safety Report 21189659 (Version 1)
Quarter: 2022Q3

REPORT INFORMATION
  Report Type: Spontaneous
  Country: US (occurrence: None)
  Receive Date: 20220808
  Receipt Date: 20220808
  Transmission Date: 20221026
  Serious: Yes (Other)
  Sender: FDA-Public Use
  Company Number: None

PATIENT
  Age: 70 Year
  Sex: Female

DRUGS (8)
  1. OPSUMIT [Suspect]
     Active Substance: MACITENTAN
     Indication: Portopulmonary hypertension
     Dosage: 10MG QD ORAL?
     Route: 048
     Dates: start: 20191007
  2. SILDENAFIL [Concomitant]
     Active Substance: SILDENAFIL
  3. FUROSEMIDE [Concomitant]
     Active Substance: FUROSEMIDE
  4. POTASSIUM CHLORIDE [Concomitant]
     Active Substance: POTASSIUM CHLORIDE
  5. SPIRONOLACTONE [Concomitant]
     Active Substance: SPIRONOLACTONE
  6. LEVOTHYROXINE [Concomitant]
     Active Substance: LEVOTHYROXINE
  7. LOSARTAN [Concomitant]
     Active Substance: LOSARTAN
  8. ALBUTEROL SULFATE [Concomitant]
     Active Substance: ALBUTEROL SULFATE

REACTIONS (6)
  - Cough [None]
  - Nasal congestion [None]
  - Pain [None]
  - Nausea [None]
  - Vomiting [None]
  - Gout [None]

NARRATIVE: CASE EVENT DATE: 20220724
